FAERS Safety Report 9885298 (Version 1)
Quarter: 2014Q1

REPORT INFORMATION
  Report Type: Spontaneous
  Country: US (occurrence: US)
  Receive Date: 20140210
  Receipt Date: 20140210
  Transmission Date: 20141002
  Serious: No
  Sender: FDA-Public Use
  Company Number: US-PFIZER INC-2014035312

PATIENT
  Sex: Female

DRUGS (1)
  1. ZOLOFT [Suspect]
     Dosage: UNK
     Dates: start: 201312

REACTIONS (4)
  - Underweight [Unknown]
  - Malaise [Unknown]
  - Lipids increased [Unknown]
  - Blood glucose abnormal [Unknown]
